FAERS Safety Report 7850877-2 (Version None)
Quarter: 2011Q4

REPORT INFORMATION
  Report Type: 
  Country: None (occurrence: None)
  Receive Date: 20111024
  Receipt Date: 20111011
  Transmission Date: 20120403
  Serious: Yes (Hospitalization, Other)
  Sender: FDA-Public Use
  Company Number: AXC-2011-000453

PATIENT
  Age: 80 Year
  Sex: Female

DRUGS (6)
  1. CEFDINIR [Suspect]
     Indication: PRODUCT USED FOR UNKNOWN INDICATION
     Dates: start: 20080101, end: 20080101
  2. ACETAMINOPHEN [Suspect]
     Indication: PRODUCT USED FOR UNKNOWN INDICATION
     Dates: start: 20080101, end: 20080101
  3. TELMISARTAN [Suspect]
     Indication: PRODUCT USED FOR UNKNOWN INDICATION
     Dosage: ORAL
     Route: 048
     Dates: start: 20080101, end: 20080101
  4. DICLOFENAC SODIUM [Suspect]
     Indication: PRODUCT USED FOR UNKNOWN INDICATION
     Dates: start: 20080101, end: 20080101
  5. SUCRALFATE [Suspect]
     Indication: PRODUCT USED FOR UNKNOWN INDICATION
     Dates: start: 20080101, end: 20080101
  6. DILTIAZEM HYDROCHLORIDE (DILTIAZEM HYDROCHLORIDE) CAPSULE [Suspect]
     Indication: HYPERTENSION
     Dosage: 200 MG, UNKN, ORAL
     Route: 048
     Dates: start: 20080101, end: 20080101

REACTIONS (7)
  - PLATELET COUNT DECREASED [None]
  - ACUTE GENERALISED EXANTHEMATOUS PUSTULOSIS [None]
  - HEART RATE INCREASED [None]
  - SCLERODERMA [None]
  - BLOOD UREA NITROGEN/CREATININE RATIO INCREASED [None]
  - ENTEROCOLITIS VIRAL [None]
  - DEHYDRATION [None]
